FAERS Safety Report 19823839 (Version 1)
Quarter: 2021Q3

REPORT INFORMATION
  Report Type: Spontaneous
  Country: US (occurrence: US)
  Receive Date: 20210913
  Receipt Date: 20210913
  Transmission Date: 20211014
  Serious: No
  Sender: FDA-Public Use
  Company Number: US-BEH-2021135756

PATIENT
  Sex: Female

DRUGS (1)
  1. HIZENTRA [Suspect]
     Active Substance: HUMAN IMMUNOGLOBULIN G
     Indication: MULTIPLE CONGENITAL ABNORMALITIES
     Dosage: 3 GRAM, QW
     Route: 058
     Dates: start: 20181020

REACTIONS (3)
  - Headache [Unknown]
  - Off label use [Unknown]
  - No adverse event [Unknown]
